FAERS Safety Report 22007942 (Version 2)
Quarter: 2023Q1

REPORT INFORMATION
  Report Type: Spontaneous
  Country: DE (occurrence: DE)
  Receive Date: 20230218
  Receipt Date: 20230314
  Transmission Date: 20230417
  Serious: Yes (Other)
  Sender: FDA-Public Use
  Company Number: DE-BAXTER-2023BAX012632

PATIENT
  Age: 60 Year
  Sex: Female

DRUGS (22)
  1. DEXAMETHASONE [Suspect]
     Active Substance: DEXAMETHASONE
     Indication: Follicular lymphoma
     Dosage: UNK
     Route: 065
     Dates: start: 20181026
  2. DEXAMETHASONE [Suspect]
     Active Substance: DEXAMETHASONE
     Dosage: UNK, UNKNOWN, LAST ADMINISTRATION
     Route: 065
     Dates: start: 20181213
  3. PREDNISONE [Suspect]
     Active Substance: PREDNISONE
     Indication: Follicular lymphoma
     Dosage: UNK, UNKNOWN
     Route: 065
     Dates: start: 20130701
  4. PREDNISONE [Suspect]
     Active Substance: PREDNISONE
     Dosage: UNK, UNKNOWN (LAST ADMINISTRATION)
     Route: 065
     Dates: start: 20140201
  5. DOXORUBICIN [Suspect]
     Active Substance: DOXORUBICIN
     Indication: Follicular lymphoma
     Dosage: UNK UNK, UNKNOWN
     Route: 065
     Dates: start: 20130701
  6. DOXORUBICIN [Suspect]
     Active Substance: DOXORUBICIN
     Dosage: UNK, UNKNOWN, LAST ADMINISTRATION
     Route: 065
     Dates: start: 20140201
  7. CYCLOPHOSPHAMIDE [Suspect]
     Active Substance: CYCLOPHOSPHAMIDE
     Indication: Follicular lymphoma
     Dosage: UNK, UNKNOWN
     Route: 065
     Dates: start: 20130701
  8. CYCLOPHOSPHAMIDE [Suspect]
     Active Substance: CYCLOPHOSPHAMIDE
     Dosage: UNK, UNKNOWN, LAST ADMINISTRATION
     Route: 065
     Dates: start: 20140201
  9. BENDAMUSTINE [Suspect]
     Active Substance: BENDAMUSTINE
     Indication: Follicular lymphoma
     Dosage: UNK, CYCLIC, DOSAGE FORM: POWDER (EXCEPT DUSTING POWDER)
     Route: 042
     Dates: start: 20150901, end: 20160201
  10. BENDAMUSTINE [Suspect]
     Active Substance: BENDAMUSTINE
     Dosage: UNK, CYCLIC, DOSAGE FORM: POWDER (EXCEPT DUSTING POWDER), LAST ADMINISTRAION
     Route: 042
     Dates: start: 20160201
  11. VINCRISTINE [Suspect]
     Active Substance: VINCRISTINE
     Indication: Follicular lymphoma
     Dosage: UNK, UNKNOWN
     Route: 065
     Dates: start: 20130701
  12. VINCRISTINE [Suspect]
     Active Substance: VINCRISTINE
     Dosage: UNK, UNKNOWN (LAST ADMINISTRATION)
     Route: 065
     Dates: start: 20140201
  13. MABTHERA [Suspect]
     Active Substance: RITUXIMAB
     Indication: Follicular lymphoma
     Dosage: UNK, UNKNOWN (FIRST LINE WITH CHOP)
     Route: 065
     Dates: start: 20130701
  14. MABTHERA [Suspect]
     Active Substance: RITUXIMAB
     Indication: Diffuse large B-cell lymphoma
     Dosage: UNK (FIRST LINE WITH CHOP), LAST ADMINISTRATION
     Route: 065
     Dates: start: 20140201
  15. MABTHERA [Suspect]
     Active Substance: RITUXIMAB
     Dosage: UNK (FIRST LINE WITH CHOP)
     Route: 065
     Dates: start: 20181026
  16. MABTHERA [Suspect]
     Active Substance: RITUXIMAB
     Dosage: UNK (FIRST LINE WITH CHOP), LAST ADMINISTRATION
     Route: 065
     Dates: start: 20181213
  17. BEAM [Suspect]
     Active Substance: SODIUM FLUORIDE
     Indication: Follicular lymphoma
     Dosage: UNK, UNKNOWN
     Route: 065
     Dates: start: 20190201
  18. BEAM [Suspect]
     Active Substance: SODIUM FLUORIDE
     Dosage: UNK, UNKNOWN (LAST ADMINISTRATION)
     Route: 065
     Dates: start: 20190213
  19. CISPLATIN\CYTARABINE\DEXAMETHASONE [Suspect]
     Active Substance: CISPLATIN\CYTARABINE\DEXAMETHASONE
     Indication: Follicular lymphoma
     Dosage: UNK, UNKNOWN
     Route: 065
     Dates: start: 20181026
  20. CISPLATIN\CYTARABINE\DEXAMETHASONE [Suspect]
     Active Substance: CISPLATIN\CYTARABINE\DEXAMETHASONE
     Dosage: UNK, UNKNOWN, LAST ADMINISTRATION
     Route: 065
     Dates: start: 20181213
  21. POLATUZUMAB VEDOTIN [Suspect]
     Active Substance: POLATUZUMAB VEDOTIN
     Indication: Follicular lymphoma
     Dosage: UNK UNK, UNKNOWN
     Route: 065
     Dates: start: 20200501
  22. POLATUZUMAB VEDOTIN [Suspect]
     Active Substance: POLATUZUMAB VEDOTIN
     Dosage: UNK, UNKNOWN (LAST ADMINISTRATION)
     Route: 065
     Dates: start: 20200601

REACTIONS (2)
  - Ototoxicity [Unknown]
  - Malignant neoplasm progression [Unknown]
